FAERS Safety Report 5804883-X (Version None)
Quarter: 2008Q3

REPORT INFORMATION
  Report Type: 
  Country: None (occurrence: None)
  Receive Date: 20080709
  Receipt Date: 20080701
  Transmission Date: 20090109
  Serious: Yes (Death, Congenital Anomaly)
  Sender: FDA-Public Use
  Company Number: FR-ELI_LILLY_AND_COMPANY-FR200807000139

PATIENT
  Sex: Female

DRUGS (2)
  1. PROZAC [Suspect]
     Indication: BIPOLAR DISORDER
     Dosage: UNK, UNK
     Route: 064
     Dates: start: 20080105
  2. LAMICTAL [Concomitant]
     Indication: BIPOLAR DISORDER
     Dosage: 400 MG, DAILY (1/D)
     Route: 064
     Dates: start: 20080105

REACTIONS (4)
  - ABORTION INDUCED [None]
  - ARNOLD-CHIARI MALFORMATION [None]
  - DRUG EXPOSURE DURING PREGNANCY [None]
  - MENINGOMYELOCELE [None]
